FAERS Safety Report 5505757-4 (Version None)
Quarter: 2007Q4

REPORT INFORMATION
  Report Type: 
  Country: None (occurrence: None)
  Receive Date: 20071102
  Receipt Date: 20071022
  Transmission Date: 20080405
  Serious: Yes (Other)
  Sender: FDA-Public Use
  Company Number: US-PFIZER INC-2007089397

PATIENT
  Sex: Female

DRUGS (6)
  1. LYRICA [Suspect]
  2. CELEBREX [Suspect]
  3. PERCOCET [Concomitant]
  4. CLONAZEPAM [Concomitant]
  5. LITHIUM [Concomitant]
  6. AMBIEN [Concomitant]

REACTIONS (5)
  - ABDOMINAL DISTENSION [None]
  - GASTROOESOPHAGEAL REFLUX DISEASE [None]
  - INTESTINAL FUNCTIONAL DISORDER [None]
  - UNEVALUABLE EVENT [None]
  - VOMITING [None]
